FAERS Safety Report 12747544 (Version 1)
Quarter: 2016Q3

REPORT INFORMATION
  Report Type: Spontaneous
  Country: US (occurrence: US)
  Receive Date: 20160915
  Receipt Date: 20160915
  Transmission Date: 20161109
  Serious: No
  Sender: FDA-Public Use
  Company Number: US-JAZZ-2016-US-009834

PATIENT
  Sex: Female

DRUGS (23)
  1. HYDROCORTISONE. [Concomitant]
     Active Substance: HYDROCORTISONE
  2. PROGESTERONE. [Concomitant]
     Active Substance: PROGESTERONE
  3. MELATONIN [Concomitant]
     Active Substance: MELATONIN
  4. CLONAZEPAM. [Concomitant]
     Active Substance: CLONAZEPAM
  5. ERGOCALCIFEROL. [Concomitant]
     Active Substance: ERGOCALCIFEROL
  6. TRAVATAN Z [Concomitant]
     Active Substance: TRAVOPROST
  7. DIFLUCAN [Concomitant]
     Active Substance: FLUCONAZOLE
  8. XYREM [Suspect]
     Active Substance: SODIUM OXYBATE
     Indication: INSOMNIA
     Dosage: 4.5 G, BID
     Route: 048
     Dates: start: 201207
  9. ESTRADIOL. [Concomitant]
     Active Substance: ESTRADIOL
  10. LUNESTA [Concomitant]
     Active Substance: ESZOPICLONE
  11. AMBIEN CR [Concomitant]
     Active Substance: ZOLPIDEM TARTRATE
  12. SPIRONOLACTONE. [Concomitant]
     Active Substance: SPIRONOLACTONE
  13. VIVELLE-DOT [Concomitant]
     Active Substance: ESTRADIOL
  14. ESTRACE [Concomitant]
     Active Substance: ESTRADIOL
  15. VANIQA [Concomitant]
     Active Substance: EFLORNITHINE HYDROCHLORIDE
  16. NYSTATIN. [Concomitant]
     Active Substance: NYSTATIN
  17. ARMOUR THYROID [Concomitant]
     Active Substance: THYROID, PORCINE
  18. VALIUM [Concomitant]
     Active Substance: DIAZEPAM
  19. VALERIAN ROOT [Concomitant]
     Active Substance: VALERIAN
  20. KLONOPIN [Concomitant]
     Active Substance: CLONAZEPAM
  21. NORCO [Concomitant]
     Active Substance: ACETAMINOPHEN\HYDROCODONE BITARTRATE
  22. TESTOSTERONE. [Concomitant]
     Active Substance: TESTOSTERONE
  23. LOTEMAX [Concomitant]
     Active Substance: LOTEPREDNOL ETABONATE

REACTIONS (2)
  - Dry eye [Unknown]
  - Vitamin D abnormal [Recovering/Resolving]
